FAERS Safety Report 8609900-X (Version None)
Quarter: 2012Q3

REPORT INFORMATION
  Report Type: 
  Country: None (occurrence: None)
  Receive Date: 20120821
  Receipt Date: 20120815
  Transmission Date: 20120928
  Serious: No
  Sender: FDA-Public Use
  Company Number: US-PFIZER INC-2012200531

PATIENT
  Age: 50 Year
  Sex: Female
  Weight: 63.039 kg

DRUGS (1)
  1. ADVIL [Suspect]
     Indication: ARTHRALGIA
     Dosage: ONE CAPSULE, UNK
     Route: 048
     Dates: start: 20120811, end: 20120811

REACTIONS (7)
  - FOREIGN BODY [None]
  - THROAT IRRITATION [None]
  - CHEST DISCOMFORT [None]
  - PRODUCT SIZE ISSUE [None]
  - CHEST PAIN [None]
  - OESOPHAGEAL IRRITATION [None]
  - GLOSSITIS [None]
